FAERS Safety Report 12498943 (Version 1)
Quarter: 2016Q2

REPORT INFORMATION
  Report Type: Spontaneous
  Country: US (occurrence: US)
  Receive Date: 20160627
  Receipt Date: 20160627
  Transmission Date: 20160815
  Serious: No
  Sender: FDA-Public Use
  Company Number: US-ELI_LILLY_AND_COMPANY-US201606001382

PATIENT
  Sex: Female

DRUGS (2)
  1. FORTEO [Suspect]
     Active Substance: TERIPARATIDE
     Indication: OSTEOPOROSIS
     Dosage: UNK, QD
     Route: 065
     Dates: start: 2010, end: 2012
  2. RECLAST [Suspect]
     Active Substance: ZOLEDRONIC ACID
     Indication: PRODUCT USED FOR UNKNOWN INDICATION
     Dosage: UNK, UNKNOWN
     Route: 065
     Dates: start: 201511

REACTIONS (6)
  - Tremor [Unknown]
  - Discomfort [Unknown]
  - Nasopharyngitis [Unknown]
  - Fibula fracture [Unknown]
  - Gastrointestinal disorder [Unknown]
  - Gait disturbance [Unknown]

NARRATIVE: CASE EVENT DATE: 201511
